FAERS Safety Report 6697491-2 (Version None)
Quarter: 2010Q2

REPORT INFORMATION
  Report Type: 
  Country: None (occurrence: None)
  Receive Date: 20100426
  Receipt Date: 20100414
  Transmission Date: 20101027
  Serious: Yes (Life-Threatening, Hospitalization, Disabling, Other)
  Sender: FDA-Public Use
  Company Number: NL-WYE-H10529509

PATIENT
  Age: 35 Year
  Sex: Female
  Weight: 76 kg

DRUGS (8)
  1. PANTOZOL [Suspect]
     Indication: HELICOBACTER INFECTION
     Route: 048
     Dates: start: 20030805, end: 20070629
  2. PANTOZOL [Suspect]
     Route: 048
     Dates: start: 20040715, end: 20040722
  3. PANTOZOL [Suspect]
     Route: 048
     Dates: start: 20051204, end: 20051211
  4. CLARITHROMYCIN [Suspect]
     Indication: HELICOBACTER INFECTION
     Route: 048
     Dates: start: 20040715, end: 20040722
  5. CLARITHROMYCIN [Suspect]
     Route: 048
     Dates: start: 20051204, end: 20051211
  6. ATROPINE SULFATE [Concomitant]
     Dosage: UNKNOWN
     Route: 048
     Dates: start: 20090119
  7. AMOXICILLIN [Suspect]
     Indication: HELICOBACTER INFECTION
     Route: 048
     Dates: start: 20040715, end: 20040722
  8. AMOXICILLIN [Suspect]
     Route: 048
     Dates: start: 20051204, end: 20051211

REACTIONS (3)
  - ANXIETY [None]
  - DEPRESSION [None]
  - MYASTHENIA GRAVIS [None]
